FAERS Safety Report 25702555 (Version 1)
Quarter: 2025Q3

REPORT INFORMATION
  Report Type: Spontaneous
  Country: EU (occurrence: EU)
  Receive Date: 20250819
  Receipt Date: 20250819
  Transmission Date: 20251020
  Serious: Yes (Other)
  Sender: EISAI
  Company Number: None

PATIENT
  Age: 47 Year
  Sex: Male
  Weight: 85 kg

DRUGS (4)
  1. LENVATINIB [Suspect]
     Active Substance: LENVATINIB
     Indication: Renal cancer metastatic
     Dosage: J1 TO J21
     Dates: start: 20250107, end: 20250612
  2. LENVATINIB [Suspect]
     Active Substance: LENVATINIB
     Dosage: J1 TO J21
     Dates: start: 20250619, end: 20250723
  3. LENVATINIB [Suspect]
     Active Substance: LENVATINIB
     Dosage: J1 TO J21
     Dates: start: 20250724
  4. KEYTRUDA [Suspect]
     Active Substance: PEMBROLIZUMAB
     Indication: Renal cancer metastatic
     Dates: start: 20250115

REACTIONS (1)
  - Polycythaemia [Not Recovered/Not Resolved]

NARRATIVE: CASE EVENT DATE: 20250610
